FAERS Safety Report 9693878 (Version 2)
Quarter: 2013Q4

REPORT INFORMATION
  Report Type: Spontaneous
  Country: ES (occurrence: ES)
  Receive Date: 20131118
  Receipt Date: 20131118
  Transmission Date: 20140711
  Serious: Yes (Hospitalization)
  Sender: FDA-Public Use
  Company Number: ES-ABBVIE-13P-144-1167193-00

PATIENT
  Sex: Male
  Weight: 65.8 kg

DRUGS (1)
  1. DUODOPA [Suspect]
     Indication: PARKINSON^S DISEASE
     Dates: start: 201111

REACTIONS (2)
  - Hip fracture [Recovering/Resolving]
  - Fall [Unknown]
